FAERS Safety Report 6058286-6 (Version None)
Quarter: 2009Q1

REPORT INFORMATION
  Report Type: 
  Country: None (occurrence: None)
  Receive Date: 20090121
  Receipt Date: 20080428
  Transmission Date: 20090719
  Serious: Yes (Other)
  Sender: FDA-Public Use
  Company Number: HQWYE951704AUG06

PATIENT
  Age: 54 Year
  Sex: Female

DRUGS (4)
  1. PREMPRO [Suspect]
     Indication: BONE DENSITY DECREASED
  2. PREMPRO [Suspect]
     Indication: CARDIAC DISORDER
  3. PREMPRO [Suspect]
     Indication: HORMONE REPLACEMENT THERAPY
  4. PREMPRO [Suspect]
     Indication: PROPHYLAXIS

REACTIONS (1)
  - BREAST CANCER [None]
